FAERS Safety Report 6427016-8 (Version None)
Quarter: 2009Q4

REPORT INFORMATION
  Report Type: 
  Country: None (occurrence: None)
  Receive Date: 20091104
  Receipt Date: 20091021
  Transmission Date: 20100525
  Serious: No
  Sender: FDA-Public Use
  Company Number: SE-MERCK-0910SWE00023

PATIENT
  Age: 66 Year
  Sex: Female

DRUGS (7)
  1. ZETIA [Suspect]
     Indication: HYPERLIPIDAEMIA
     Route: 048
     Dates: start: 20090325, end: 20091019
  2. VITAMINS (UNSPECIFIED) [Concomitant]
     Route: 065
  3. OMEGA-3 MARINE TRIGLYCERIDES [Concomitant]
     Route: 065
  4. LEVOTHYROXINE SODIUM [Concomitant]
     Route: 065
  5. DICLOFENAC SODIUM [Concomitant]
     Route: 054
  6. DIAZEPAM [Concomitant]
     Route: 065
  7. DICLOFENAC [Concomitant]
     Route: 065

REACTIONS (1)
  - TENDONITIS [None]
